FAERS Safety Report 13413689 (Version 1)
Quarter: 2017Q2

REPORT INFORMATION
  Report Type: Spontaneous
  Country: US (occurrence: US)
  Receive Date: 20170406
  Receipt Date: 20170406
  Transmission Date: 20170830
  Serious: No
  Sender: FDA-Public Use
  Company Number: US-JNJFOC-20170304755

PATIENT
  Age: 52 Year
  Sex: Male

DRUGS (5)
  1. RISPERIDONE. [Suspect]
     Active Substance: RISPERIDONE
     Indication: THINKING ABNORMAL
     Route: 048
     Dates: start: 20000720, end: 20010721
  2. RISPERDAL [Suspect]
     Active Substance: RISPERIDONE
     Indication: PRODUCT USED FOR UNKNOWN INDICATION
     Route: 048
     Dates: start: 20070624, end: 20130516
  3. RISPERIDONE. [Suspect]
     Active Substance: RISPERIDONE
     Indication: THINKING ABNORMAL
     Route: 048
     Dates: start: 20000720, end: 20010721
  4. RISPERIDONE. [Suspect]
     Active Substance: RISPERIDONE
     Indication: THINKING ABNORMAL
     Dosage: ? TABLET TWICE A DAY(23-AUG-2000 TO 26-OCT-2001), 1 TABLET TWICE A DAY(21-DEC-2000 TO 22-DEC-2001)
     Route: 048
     Dates: start: 20000823, end: 20001222
  5. RISPERIDONE. [Suspect]
     Active Substance: RISPERIDONE
     Indication: THINKING ABNORMAL
     Dosage: ? TABLET TWICE A DAY(23-AUG-2000 TO 26-OCT-2001), 1 TABLET TWICE A DAY(21-DEC-2000 TO 22-DEC-2001)
     Route: 048
     Dates: start: 20000823, end: 20001222

REACTIONS (4)
  - Gynaecomastia [Unknown]
  - Off label use [Unknown]
  - Emotional disorder [Unknown]
  - Product use in unapproved indication [Unknown]

NARRATIVE: CASE EVENT DATE: 20000720
